FAERS Safety Report 19832035 (Version 5)
Quarter: 2021Q4

REPORT INFORMATION
  Report Type: Report from Study
  Country: JP (occurrence: JP)
  Receive Date: 20210915
  Receipt Date: 20211105
  Transmission Date: 20220303
  Serious: Yes (Death, Other)
  Sender: FDA-Public Use
  Company Number: NVSJ2021JP013691

PATIENT
  Age: 72 Year
  Sex: Female

DRUGS (2)
  1. TABRECTA [Suspect]
     Active Substance: CAPMATINIB
     Indication: Non-small cell lung cancer
     Dosage: 800 MG
     Route: 048
     Dates: start: 20210325, end: 20210402
  2. TABRECTA [Suspect]
     Active Substance: CAPMATINIB
     Dosage: 800 MG
     Route: 048
     Dates: start: 20210520, end: 20210608

REACTIONS (2)
  - General physical health deterioration [Fatal]
  - Oesophageal stenosis [Not Recovered/Not Resolved]

NARRATIVE: CASE EVENT DATE: 20210325
